FAERS Safety Report 9140742 (Version 1)
Quarter: 2013Q1

REPORT INFORMATION
  Report Type: Spontaneous
  Country: US (occurrence: None)
  Receive Date: 20130227
  Receipt Date: 20130227
  Transmission Date: 20140127
  Serious: Yes (Death)
  Sender: FDA-Public Use
  Company Number: SYM-2013-00389

PATIENT
  Age: 20 Year
  Sex: Female

DRUGS (4)
  1. LORAZEPAM (LORAZEPAM) (LORAZEPAM) [Suspect]
     Indication: PRODUCT USED FOR UNKNOWN INDICATION
     Dosage: ORAL
     Route: 048
  2. TRYPTAMINE (HALLUCINOGENIC) (OTHER THERAPEUTIC PRODUCTS) (NULL) [Suspect]
     Dosage: ORAL
     Route: 048
  3. MARIJUANA [Suspect]
     Dosage: ORAL
     Route: 048
  4. DRUG, UNKNOWN (OTHER THERAPEUTIC PRODUCTS) (NULL) [Suspect]
     Dosage: ORAL
     Route: 048

REACTIONS (18)
  - Poisoning [None]
  - Acidosis [None]
  - Apnoea [None]
  - Areflexia [None]
  - Blood calcium decreased [None]
  - White blood cell count decreased [None]
  - Brain oedema [None]
  - Myocardial infarction [None]
  - Necrosis [None]
  - Electroencephalogram abnormal [None]
  - Hepatic necrosis [None]
  - Myoglobin blood increased [None]
  - Platelet count decreased [None]
  - Bronchopneumonia [None]
  - Hyponatraemia [None]
  - Toxicity to various agents [None]
  - Agitation [None]
  - Haemorrhagic infarction [None]
